FAERS Safety Report 5190869-8 (Version None)
Quarter: 2006Q4

REPORT INFORMATION
  Report Type: 
  Country: None (occurrence: None)
  Receive Date: 20061222
  Receipt Date: 20061218
  Transmission Date: 20070319
  Serious: Yes (Other)
  Sender: FDA-Public Use
  Company Number: AT-BRISTOL-MYERS SQUIBB COMPANY-13617691

PATIENT
  Age: 31 Month
  Sex: Female

DRUGS (1)
  1. CYCLOPHOSPHAMIDE [Suspect]
     Indication: HAEMANGIOMA OF LIVER

REACTIONS (1)
  - ACUTE MYELOID LEUKAEMIA [None]
